FAERS Safety Report 5025028-2 (Version None)
Quarter: 2006Q2

REPORT INFORMATION
  Report Type: 
  Country: None (occurrence: None)
  Receive Date: 20060426
  Receipt Date: 20060226
  Transmission Date: 20061013
  Serious: Yes (Other)
  Sender: FDA-Public Use
  Company Number: 2006028789

PATIENT
  Age: 45 Year
  Sex: Female
  Weight: 52.1637 kg

DRUGS (1)
  1. LYRICA [Suspect]
     Indication: PAIN
     Dosage: 3 IN 1 D
     Dates: start: 20060224

REACTIONS (5)
  - DYSARTHRIA [None]
  - MENTAL IMPAIRMENT [None]
  - MUSCULAR WEAKNESS [None]
  - PAIN [None]
  - SPEECH DISORDER [None]
